FAERS Safety Report 5365370-9 (Version None)
Quarter: 2007Q2

REPORT INFORMATION
  Report Type: 
  Country: None (occurrence: None)
  Receive Date: 20070621
  Receipt Date: 20070613
  Transmission Date: 20071010
  Serious: Yes (Other)
  Sender: FDA-Public Use
  Company Number: JP-ROCHE-493995

PATIENT
  Age: 16 Year
  Sex: Male

DRUGS (4)
  1. TAMIFLU [Suspect]
     Route: 048
     Dates: start: 20070122, end: 20070122
  2. TAMIFLU [Suspect]
     Route: 048
     Dates: start: 20070123, end: 20070125
  3. TAMIFLU [Suspect]
     Route: 048
     Dates: start: 20070126
  4. PLACODE [Concomitant]
     Route: 048
     Dates: start: 20070122

REACTIONS (3)
  - ABNORMAL BEHAVIOUR [None]
  - DIZZINESS [None]
  - FALL [None]
